FAERS Safety Report 8816220 (Version 2)
Quarter: 2012Q4

REPORT INFORMATION
  Report Type: 
  Country: US (occurrence: US)
  Receive Date: 20120930
  Receipt Date: 20121008
  Transmission Date: 20130627
  Serious: Yes (Hospitalization, Other)
  Sender: FDA-Public Use
  Company Number: US-ELI_LILLY_AND_COMPANY-US201101006281

PATIENT
  Age: 28 Year
  Sex: Male

DRUGS (2)
  1. PROZAC [Suspect]
     Indication: DEPRESSION
     Dosage: 1 DF, qd
     Dates: start: 1987, end: 1988
  2. STELAZINE [Concomitant]

REACTIONS (18)
  - Blindness unilateral [Not Recovered/Not Resolved]
  - Libido increased [Unknown]
  - Malaise [Unknown]
  - Paraphilia [Unknown]
  - Sexually inappropriate behaviour [Unknown]
  - Affective disorder [Unknown]
  - Impulsive behaviour [Unknown]
  - Abulia [Unknown]
  - Confusional state [Unknown]
  - Delusion [Unknown]
  - Aphasia [Unknown]
  - Feeling abnormal [Unknown]
  - Learning disorder [Unknown]
  - Diverticulum [Unknown]
  - Tinnitus [Unknown]
  - Phobia [Unknown]
  - Visual acuity reduced [Unknown]
  - Hypersensitivity [Unknown]
